FAERS Safety Report 20721698 (Version 2)
Quarter: 2022Q4

REPORT INFORMATION
  Report Type: Spontaneous
  Country: US (occurrence: US)
  Receive Date: 20220418
  Receipt Date: 20221102
  Transmission Date: 20230113
  Serious: Yes (Other)
  Sender: FDA-Public Use
  Company Number: US-BRISTOL-MYERS SQUIBB COMPANY-2022-018412

PATIENT
  Age: 40 Year
  Sex: Female
  Weight: 70.3 kg

DRUGS (4)
  1. ORENCIA [Suspect]
     Active Substance: ABATACEPT
     Indication: Ankylosing spondylitis
     Dosage: FREQ : EVERY TWO WEEKS FOR THREE INFUSIONS, THEN EVERY FOUR WEEKS AFTER THAT
     Route: 042
     Dates: start: 20220224
  2. HYDROCORTISONE [Concomitant]
     Active Substance: HYDROCORTISONE
     Indication: Product used for unknown indication
     Route: 042
  3. TIROSINT [Concomitant]
     Active Substance: LEVOTHYROXINE SODIUM
     Indication: Thyroid disorder
     Route: 065
  4. NORETHINDRONE [Concomitant]
     Active Substance: NORETHINDRONE
     Indication: Haemorrhage
     Route: 065

REACTIONS (5)
  - Uterine leiomyoma [Unknown]
  - Heavy menstrual bleeding [Unknown]
  - Dyspnoea [Unknown]
  - Oesophageal motility disorder [Unknown]
  - Product use in unapproved indication [Unknown]

NARRATIVE: CASE EVENT DATE: 20220201
